FAERS Safety Report 10164389 (Version 1)
Quarter: 2014Q2

REPORT INFORMATION
  Report Type: Spontaneous
  Country: US (occurrence: US)
  Receive Date: 20140510
  Receipt Date: 20140510
  Transmission Date: 20141212
  Serious: No
  Sender: FDA-Public Use
  Company Number: US-BRISTOL-MYERS SQUIBB COMPANY-20116992

PATIENT
  Age: 66 Year
  Sex: Female
  Weight: 113.38 kg

DRUGS (3)
  1. BYETTA PEN DISPOSABLE [Suspect]
     Indication: TYPE 2 DIABETES MELLITUS
  2. METFORMIN [Concomitant]
     Dosage: 3QD AT EVENING MEAL
  3. GLIMEPIRIDE [Concomitant]
     Dosage: 1/2 TABLET AT EVENING MEAL

REACTIONS (1)
  - Drug dose omission [Unknown]
